FAERS Safety Report 5603250-1 (Version None)
Quarter: 2008Q1

REPORT INFORMATION
  Report Type: 
  Country: None (occurrence: None)
  Receive Date: 20080122
  Receipt Date: 20080109
  Transmission Date: 20080703
  Serious: Yes (Life-Threatening, Hospitalization)
  Sender: FDA-Public Use
  Company Number: VNL_00614_2007

PATIENT
  Sex: Male

DRUGS (14)
  1. APO-GO (APOMORPHINE HYDROCHLORIDE) [Suspect]
     Indication: PARKINSONISM
     Dosage: (60 - 100 MG/DAY FOR 4 WEEKS 2 DAYS SUBCUTANEOUS)
     Route: 058
     Dates: start: 20070510, end: 20070608
  2. APO-GO (APOMORPHINE HYDROCHLORIDE) [Suspect]
     Indication: PARKINSONISM
     Dosage: (DF FOR 4 DAYS SUBCUTANEOUS)
     Route: 058
     Dates: start: 20070608, end: 20070611
  3. APO-GO (APOMORPHINE HYDROCHLORIDE) [Suspect]
     Indication: PARKINSONISM
     Dosage: (INTERMITTENT INJECTIOSN SUBCUTANEOUS)
     Route: 058
  4. CIPROFLOXACIN [Suspect]
     Indication: INFLAMMATION
     Dosage: (500 MG BID ORAL)
     Route: 048
     Dates: start: 20070522, end: 20070529
  5. UNASYN [Suspect]
     Indication: INFLAMMATION
     Dosage: (375 MG BID ORAL)
     Route: 048
     Dates: start: 20070515, end: 20070521
  6. ROCEPHIN [Suspect]
     Indication: INFLAMMATION
     Dosage: (2 G DF INTRAVENOUS)
     Route: 042
     Dates: start: 20070530, end: 20070602
  7. PK-MERZ [Concomitant]
  8. STALEVO 100 [Concomitant]
  9. AZILECT [Concomitant]
  10. DIGITOXIN INJ [Concomitant]
  11. LISINOPRIL [Concomitant]
  12. VITAMIN B-12 [Concomitant]
  13. ATACAND [Concomitant]
  14. TOREM [Concomitant]

REACTIONS (13)
  - AUTOIMMUNE DISORDER [None]
  - DIARRHOEA [None]
  - DRUG TOLERANCE DECREASED [None]
  - GENERAL PHYSICAL HEALTH DETERIORATION [None]
  - HAEMATURIA [None]
  - HYPERKINESIA [None]
  - INFLAMMATION [None]
  - INFUSION SITE INFLAMMATION [None]
  - MUCOSAL HAEMORRHAGE [None]
  - PETECHIAE [None]
  - ROTAVIRUS TEST POSITIVE [None]
  - THROMBOCYTOPENIA [None]
  - VIRAL INFECTION [None]
